FAERS Safety Report 23231686 (Version 1)
Quarter: 2023Q4

REPORT INFORMATION
  Report Type: Spontaneous
  Country: US (occurrence: None)
  Receive Date: 20231125
  Receipt Date: 20231125
  Transmission Date: 20240109
  Serious: Yes (Death)
  Sender: FDA-Public Use
  Company Number: None

PATIENT
  Age: 52 Year
  Sex: Male

DRUGS (10)
  1. CREON [Suspect]
     Active Substance: PANCRELIPASE AMYLASE\PANCRELIPASE LIPASE\PANCRELIPASE PROTEASE
     Indication: Pancreatic carcinoma
     Dosage: 36000 IU  INTRNATIONAL UNIT(S)  UP TO 8X/DAY ORAL
     Route: 048
     Dates: start: 20221116, end: 20230605
  2. Senna syrup 176mg/5mL [Concomitant]
     Dates: start: 20230625, end: 20230625
  3. ondansetron ODT 8mg tablet [Concomitant]
     Dates: start: 20221110, end: 20230625
  4. folic acid 400mcg tablet [Concomitant]
     Dates: start: 20230625, end: 20230625
  5. midodrine 5mg tablet [Concomitant]
     Dates: start: 20230625, end: 20230625
  6. hydromorphone 2mg - 4mg tablet [Concomitant]
     Dates: start: 20230523, end: 20230625
  7. BACTRIM DS [Concomitant]
     Active Substance: SULFAMETHOXAZOLE\TRIMETHOPRIM
     Dates: start: 20230625, end: 20230625
  8. Vitamin B1 100mg tablet [Concomitant]
     Dates: start: 20230625, end: 20230625
  9. fentanyl 12mcg/hour - 25mcg/hour patch [Concomitant]
     Dates: start: 20230510, end: 20230625
  10. LEVOTHYROXINE [Concomitant]
     Active Substance: LEVOTHYROXINE
     Dates: start: 20230605, end: 20230625

REACTIONS (1)
  - Death [None]

NARRATIVE: CASE EVENT DATE: 20231125
